FAERS Safety Report 6516420-5 (Version None)
Quarter: 2009Q4

REPORT INFORMATION
  Report Type: 
  Country: None (occurrence: None)
  Receive Date: 20091223
  Receipt Date: 20091214
  Transmission Date: 20100525
  Serious: Yes (Hospitalization)
  Sender: FDA-Public Use
  Company Number: B0616596A

PATIENT
  Age: 71 Year
  Sex: Male

DRUGS (2)
  1. SERETIDE [Suspect]
     Indication: CHRONIC OBSTRUCTIVE PULMONARY DISEASE
     Route: 055
  2. TIOTROPIUM BROMIDE [Concomitant]
     Route: 055

REACTIONS (1)
  - RESPIRATORY MONILIASIS [None]
